FAERS Safety Report 13406835 (Version 1)
Quarter: 2017Q2

REPORT INFORMATION
  Report Type: Spontaneous
  Country: PL (occurrence: PL)
  Receive Date: 20170405
  Receipt Date: 20170405
  Transmission Date: 20170830
  Serious: Yes (Hospitalization, Other)
  Sender: FDA-Public Use
  Company Number: PL-ABBVIE-17P-129-1925319-00

PATIENT
  Sex: Female

DRUGS (4)
  1. SODIUM VALPROATE/VALPROIC ACID [Suspect]
     Active Substance: VALPROATE SODIUM
     Indication: SEIZURE
     Dosage: PROLONGED-RELEASE
     Route: 048
  2. VALPROIC ACID. [Suspect]
     Active Substance: VALPROIC ACID
     Indication: SEIZURE
     Route: 048
  3. SODIUM VALPROATE/VALPROIC ACID [Suspect]
     Active Substance: VALPROATE SODIUM
     Dosage: ENTERIC-COATED FAST-RELEASING TABLETS INCREASED TO 3000 MG PER DAY
     Route: 048
  4. SODIUM VALPROATE/VALPROIC ACID [Suspect]
     Active Substance: VALPROATE SODIUM
     Route: 048

REACTIONS (4)
  - Seizure [Recovering/Resolving]
  - Drug level decreased [Recovered/Resolved]
  - Malabsorption [Recovered/Resolved]
  - Drug ineffective [Recovered/Resolved]
